FAERS Safety Report 10791524 (Version 1)
Quarter: 2015Q1

REPORT INFORMATION
  Report Type: Spontaneous
  Country: US (occurrence: US)
  Receive Date: 20150213
  Receipt Date: 20150213
  Transmission Date: 20150721
  Serious: No
  Sender: FDA-Public Use
  Company Number: US-GLAXOSMITHKLINE-A1068663A

PATIENT

DRUGS (2)
  1. NICORETTE FRUIT CHILL [Suspect]
     Active Substance: NICOTINE
  2. NICORETTE FRUIT CHILL [Suspect]
     Active Substance: NICOTINE

REACTIONS (2)
  - Drug administration error [Unknown]
  - Drug ineffective [Unknown]
